FAERS Safety Report 7343862-0 (Version None)
Quarter: 2011Q1

REPORT INFORMATION
  Report Type: 
  Country: None (occurrence: None)
  Receive Date: 20110310
  Receipt Date: 20110225
  Transmission Date: 20110831
  Serious: Yes (Hospitalization)
  Sender: FDA-Public Use
  Company Number: PHHY2011US17371

PATIENT
  Age: 48 Year
  Sex: Male

DRUGS (1)
  1. METOPROLOL [Suspect]
     Indication: HYPERTENSION
     Dosage: 12.5 MG, BID

REACTIONS (9)
  - DYSPNOEA [None]
  - HEART SOUNDS ABNORMAL [None]
  - EJECTION FRACTION DECREASED [None]
  - STRESS CARDIOMYOPATHY [None]
  - RALES [None]
  - HYPOTENSION [None]
  - VENTRICULAR HYPERKINESIA [None]
  - VENTRICULAR DYSKINESIA [None]
  - CHEST PAIN [None]
